FAERS Safety Report 7129583-8 (Version None)
Quarter: 2010Q4

REPORT INFORMATION
  Report Type: 
  Country: None (occurrence: None)
  Receive Date: 20101130
  Receipt Date: 20101115
  Transmission Date: 20110411
  Serious: Yes (Other)
  Sender: FDA-Public Use
  Company Number: PHHY2010US77854

PATIENT
  Sex: Male
  Weight: 16 kg

DRUGS (1)
  1. EXJADE [Suspect]
     Indication: IRON METABOLISM DISORDER
     Dosage: 750 MG, QD
     Route: 048
     Dates: start: 20100801, end: 20100801

REACTIONS (1)
  - NEUROBLASTOMA [None]
